FAERS Safety Report 5037835-0 (Version None)
Quarter: 2006Q2

REPORT INFORMATION
  Report Type: 
  Country: None (occurrence: None)
  Receive Date: 20060626
  Receipt Date: 20060612
  Transmission Date: 20061013
  Serious: Yes (Other)
  Sender: FDA-Public Use
  Company Number: GXKR2006SE03465

PATIENT
  Age: 76 Year
  Sex: Male

DRUGS (1)
  1. CIPROFLOXACIN [Suspect]
     Dosage: 1000 MG, ORAL
     Route: 048
     Dates: end: 20060611

REACTIONS (6)
  - ANOREXIA [None]
  - ASTHENOPIA [None]
  - DRY MOUTH [None]
  - FATIGUE [None]
  - HYPOAESTHESIA [None]
  - LIMB DISCOMFORT [None]
